FAERS Safety Report 19694421 (Version 1)
Quarter: 2021Q3

REPORT INFORMATION
  Report Type: Spontaneous
  Country: CA (occurrence: CA)
  Receive Date: 20210813
  Receipt Date: 20210813
  Transmission Date: 20211014
  Serious: Yes (Other)
  Sender: FDA-Public Use
  Company Number: CA-TEVA-2021-CA-1940502

PATIENT
  Age: 33 Year
  Sex: Female
  Weight: 89 kg

DRUGS (13)
  1. ARTHROTEC [Concomitant]
     Active Substance: DICLOFENAC SODIUM\MISOPROSTOL
  2. FORMOTEROL FUMARATE/MOMETASONE FUROATE [Concomitant]
     Active Substance: FORMOTEROL FUMARATE\MOMETASONE FUROATE
  3. SALBUTAMOL [Concomitant]
     Active Substance: ALBUTEROL
  4. MAGNESIUM [Concomitant]
     Active Substance: MAGNESIUM
  5. MIDODRINE [Concomitant]
     Active Substance: MIDODRINE
  6. CAMBIA [Concomitant]
     Active Substance: DICLOFENAC POTASSIUM
  7. MODAFINIL. [Concomitant]
     Active Substance: MODAFINIL
  8. VITAMIN D [Concomitant]
     Active Substance: VITAMIN D NOS
  9. CIPROFLOXACIN. [Suspect]
     Active Substance: CIPROFLOXACIN
     Indication: PYELONEPHRITIS
     Dosage: 1000 MILLIGRAM DAILY;
     Route: 048
  10. ANADOL [TRAMADOL HYDROCHLORIDE] [Concomitant]
  11. MESTINON [Concomitant]
     Active Substance: PYRIDOSTIGMINE BROMIDE
  12. CETIRIZINE HYDROCHLORIDE. [Concomitant]
     Active Substance: CETIRIZINE HYDROCHLORIDE
  13. PANTOPRAZOLE [Concomitant]
     Active Substance: PANTOPRAZOLE

REACTIONS (8)
  - Quality of life decreased [Not Recovered/Not Resolved]
  - Insomnia [Not Recovered/Not Resolved]
  - Pain [Not Recovered/Not Resolved]
  - Neuropathy peripheral [Not Recovered/Not Resolved]
  - Angioedema [Not Recovered/Not Resolved]
  - Joint stiffness [Not Recovered/Not Resolved]
  - Paraesthesia [Not Recovered/Not Resolved]
  - Pain of skin [Not Recovered/Not Resolved]
